FAERS Safety Report 12746266 (Version 2)
Quarter: 2016Q4

REPORT INFORMATION
  Report Type: Spontaneous
  Country: FR (occurrence: FR)
  Receive Date: 20160915
  Receipt Date: 20161024
  Transmission Date: 20170207
  Serious: Yes (Hospitalization)
  Sender: FDA-Public Use
  Company Number: FR-PFIZER INC-2016423794

PATIENT
  Age: 8 Year
  Sex: Female
  Weight: 40 kg

DRUGS (1)
  1. RAPAMUNE [Suspect]
     Active Substance: SIROLIMUS
     Indication: IMMUNE THROMBOCYTOPENIC PURPURA
     Dosage: 2 MG, 1X/DAY
     Route: 048
     Dates: start: 201607, end: 20160818

REACTIONS (4)
  - Papilloedema [Recovered/Resolved]
  - Product use issue [Unknown]
  - Intracranial pressure increased [Recovered/Resolved]
  - Meningitis aseptic [Recovered/Resolved]

NARRATIVE: CASE EVENT DATE: 201608
